FAERS Safety Report 6470903-5 (Version None)
Quarter: 2009Q4

REPORT INFORMATION
  Report Type: 
  Country: None (occurrence: None)
  Receive Date: 20091203
  Receipt Date: 20080226
  Transmission Date: 20100525
  Serious: Yes (Death, Hospitalization, Other)
  Sender: FDA-Public Use
  Company Number: GB-ELI_LILLY_AND_COMPANY-GB200801005701

PATIENT
  Age: 49 Year
  Sex: Male

DRUGS (1)
  1. OLANZAPINE [Suspect]
     Indication: PSYCHOTIC DISORDER
     Dosage: 5 MG, DAILY (1/D)
     Route: 048
     Dates: start: 20080101, end: 20080101

REACTIONS (2)
  - CLOSTRIDIAL INFECTION [None]
  - NEUROLEPTIC MALIGNANT SYNDROME [None]
